FAERS Safety Report 5016916-1 (Version None)
Quarter: 2006Q2

REPORT INFORMATION
  Report Type: 
  Country: None (occurrence: None)
  Receive Date: 20060526
  Receipt Date: 20060519
  Transmission Date: 20061013
  Serious: Yes (Hospitalization)
  Sender: FDA-Public Use
  Company Number: T06-USA-00260-01

PATIENT
  Age: 78 Year
  Sex: Female
  Weight: 80.831 kg

DRUGS (17)
  1. MEMANTINE HCL [Suspect]
  2. PLACEBO (UNBLINDED) (PLACEBO) [Suspect]
     Indication: DEMENTIA ALZHEIMER'S TYPE
     Dosage: 4 TABLET QD PO
     Route: 048
     Dates: start: 20050922, end: 20060126
  3. SINEMET [Concomitant]
  4. ESCITALOPRAM OXALATE (ESCITALOPRAM) [Concomitant]
  5. METFORMIN [Concomitant]
  6. NYSTATIN/TRIAMCINOLONE [Concomitant]
  7. METOCLOPRAMIDE HYDROCHLORIDE [Concomitant]
  8. TEMAZEPAM [Concomitant]
  9. ACETAMINOPHEN [Concomitant]
  10. POTASSIUM CHLORIDE [Concomitant]
  11. GLIMEPIRIDE [Concomitant]
  12. LOVASTATIN [Concomitant]
  13. XENODERM OINTMENT [Concomitant]
  14. GLYBURIDE [Concomitant]
  15. OXYBUTYNIN [Concomitant]
  16. SEROQUEL [Concomitant]
  17. LEVADOPA [Concomitant]

REACTIONS (10)
  - ACTIVATED PARTIAL THROMBOPLASTIN TIME PROLONGED [None]
  - ANAEMIA [None]
  - BLOOD PRESSURE DECREASED [None]
  - DEEP VEIN THROMBOSIS [None]
  - FALL [None]
  - GASTROINTESTINAL HAEMORRHAGE [None]
  - INTERNATIONAL NORMALISED RATIO INCREASED [None]
  - MENTAL DISORDER DUE TO A GENERAL MEDICAL CONDITION [None]
  - MUCOSAL HAEMORRHAGE [None]
  - PROTHROMBIN TIME PROLONGED [None]
